FAERS Safety Report 25661706 (Version 1)
Quarter: 2025Q3

REPORT INFORMATION
  Report Type: Spontaneous
  Country: EU (occurrence: EU)
  Receive Date: 20250808
  Receipt Date: 20250808
  Transmission Date: 20251021
  Serious: Yes (Hospitalization)
  Sender: MERCK SHARP & DOHME LLC
  Company Number: None

PATIENT
  Age: 77 Year
  Sex: Male

DRUGS (1)
  1. KEYTRUDA [Suspect]
     Active Substance: PEMBROLIZUMAB
     Indication: Large intestine benign neoplasm
     Route: 042
     Dates: start: 20230814, end: 20250103

REACTIONS (3)
  - Lichen planus pemphigoides [Recovered/Resolved]
  - Cholangitis sclerosing [Recovered/Resolved]
  - Biliary tract infection [Recovered/Resolved]

NARRATIVE: CASE EVENT DATE: 20231009
